FAERS Safety Report 10667889 (Version 1)
Quarter: 2014Q4

REPORT INFORMATION
  Report Type: Spontaneous
  Country: US (occurrence: None)
  Receive Date: 20141219
  Receipt Date: 20141219
  Transmission Date: 20150529
  Serious: No
  Sender: FDA-Public Use
  Company Number: None

PATIENT
  Age: 56 Year
  Sex: Female
  Weight: 95 kg

DRUGS (1)
  1. CISPLATIN. [Suspect]
     Active Substance: CISPLATIN
     Dates: end: 20141112

REACTIONS (4)
  - Device related infection [None]
  - Lymphocyte count decreased [None]
  - Skin infection [None]
  - Urinary tract infection [None]

NARRATIVE: CASE EVENT DATE: 20141113
